FAERS Safety Report 10194250 (Version 5)
Quarter: 2016Q3

REPORT INFORMATION
  Report Type: Spontaneous
  Country: DE (occurrence: DE)
  Receive Date: 20140525
  Receipt Date: 20160722
  Transmission Date: 20161108
  Serious: Yes (Hospitalization, Other)
  Sender: FDA-Public Use
  Company Number: DE-BRISTOL-MYERS SQUIBB COMPANY-20773024

PATIENT
  Sex: Female
  Weight: 95 kg

DRUGS (1)
  1. YERVOY [Suspect]
     Active Substance: IPILIMUMAB
     Indication: MALIGNANT MELANOMA
     Dosage: FIRST INFUSION
     Route: 042
     Dates: start: 20140430

REACTIONS (1)
  - Vogt-Koyanagi-Harada syndrome [Recovering/Resolving]
